FAERS Safety Report 6373623-0 (Version None)
Quarter: 2009Q3

REPORT INFORMATION
  Report Type: 
  Country: None (occurrence: None)
  Receive Date: 20090924
  Receipt Date: 20090915
  Transmission Date: 20100115
  Serious: Yes (Other)
  Sender: FDA-Public Use
  Company Number: BR-PFIZER INC-2009255557

PATIENT
  Age: 4 Year

DRUGS (6)
  1. EPELIN [Suspect]
     Indication: CONVULSION
     Dosage: 2.5 ML, 3X/DAY
     Route: 048
     Dates: start: 20070701, end: 20081201
  2. PHENYTOIN [Suspect]
     Dosage: UNK
  3. TOPIRAMATE [Concomitant]
     Dosage: UNK
  4. LUFTAL [Concomitant]
     Dosage: UNK
  5. MYLICON [Concomitant]
     Dosage: UNK
  6. LOSEC [Concomitant]
     Dosage: UNK

REACTIONS (1)
  - HEPATITIS [None]
